FAERS Safety Report 7597183-1 (Version None)
Quarter: 2011Q3

REPORT INFORMATION
  Report Type: 
  Country: None (occurrence: None)
  Receive Date: 20110708
  Receipt Date: 20100722
  Transmission Date: 20111222
  Serious: Yes (Disabling)
  Sender: FDA-Public Use
  Company Number: US-GLAXOSMITHKLINE-A0871898A

PATIENT
  Age: 44 Year
  Sex: Female

DRUGS (6)
  1. LISINOPRIL [Concomitant]
  2. PLAQUENIL [Concomitant]
  3. PHOSLO [Concomitant]
  4. CALCITRIOL [Concomitant]
  5. FLOVENT [Suspect]
     Indication: ASTHMA
     Dosage: 2PUFF TWICE PER DAY
     Route: 055
     Dates: start: 20090101
  6. PREDNISOLONE [Concomitant]

REACTIONS (3)
  - INCORRECT DRUG ADMINISTRATION DURATION [None]
  - DRUG INEFFECTIVE [None]
  - ASTHMA [None]
